FAERS Safety Report 4559310-X (Version None)
Quarter: 2005Q1

REPORT INFORMATION
  Report Type: 
  Country: None (occurrence: None)
  Receive Date: 20050120
  Receipt Date: 20050120
  Transmission Date: 20050727
  Serious: Yes (Hospitalization)
  Sender: FDA-Public Use
  Company Number: None

PATIENT
  Age: 76 Year
  Sex: Male

DRUGS (9)
  1. HEPARIN [Suspect]
     Indication: ATRIAL FIBRILLATION
     Dosage: AFIB
     Dates: start: 20041109, end: 20041213
  2. AMIODARONE [Concomitant]
  3. LISINOPRIL [Concomitant]
  4. METOPROLOL [Concomitant]
  5. HYDRALAZNE [Concomitant]
  6. SIMVASTATIN [Concomitant]
  7. OMEPRAZOLE [Concomitant]
  8. INSULIINE [Concomitant]
  9. ISORDIL [Concomitant]

REACTIONS (1)
  - THROMBOCYTOPENIA [None]
